FAERS Safety Report 9270648 (Version 1)
Quarter: 2013Q2

REPORT INFORMATION
  Report Type: Spontaneous
  Country: NO (occurrence: NO)
  Receive Date: 20130504
  Receipt Date: 20130504
  Transmission Date: 20140414
  Serious: Yes (Other)
  Sender: FDA-Public Use
  Company Number: NO-ACCORD-017453

PATIENT
  Age: 34 Year
  Sex: Female

DRUGS (4)
  1. TACROLIMUS [Suspect]
     Indication: RENAL TRANSPLANT
     Dosage: DOSE WAS REDUCED TO 2 MG BD ON 03-10-2012
     Route: 048
     Dates: start: 2009
  2. DOSTINEX [Interacting]
     Indication: HYPERPROLACTINAEMIA
     Route: 048
     Dates: start: 20120914
  3. PREDNISONE [Concomitant]
     Route: 048
  4. ALDOMET [Concomitant]
     Route: 048

REACTIONS (4)
  - Drug interaction [Recovered/Resolved]
  - Tenderness [Not Recovered/Not Resolved]
  - Immunosuppressant drug level increased [Recovered/Resolved]
  - Haematuria [Recovered/Resolved]
